FAERS Safety Report 9739845 (Version 1)
Quarter: 2013Q4

REPORT INFORMATION
  Report Type: Spontaneous
  Country: US (occurrence: US)
  Receive Date: 20131209
  Receipt Date: 20131209
  Transmission Date: 20140711
  Serious: Yes (Death)
  Sender: FDA-Public Use
  Company Number: US-ASTELLAS-2013US010719

PATIENT
  Age: 83 Year
  Sex: Male

DRUGS (1)
  1. XTANDI [Suspect]
     Indication: NEOPLASM MALIGNANT
     Dosage: 160 MG, UID/QD
     Route: 048
     Dates: start: 20130918, end: 20130926

REACTIONS (1)
  - Prostate cancer [Fatal]
